FAERS Safety Report 7702457-7 (Version None)
Quarter: 2011Q3

REPORT INFORMATION
  Report Type: 
  Country: None (occurrence: None)
  Receive Date: 20110823
  Receipt Date: 20110808
  Transmission Date: 20111222
  Serious: Yes (Other)
  Sender: FDA-Public Use
  Company Number: BR-RANBAXY-2011R5-46844

PATIENT

DRUGS (4)
  1. VALPROIC ACID [Concomitant]
     Indication: EPILEPSY
     Dosage: 1000 MG/DAY
     Route: 048
  2. OXCARBAZEPINE [Suspect]
     Indication: EPILEPSY
     Dosage: 600 MG, BID
     Route: 048
  3. OXCARBAZEPINE [Suspect]
     Dosage: 300 MG, QID
     Route: 048
  4. LOSARTAN [Concomitant]
     Indication: HYPERTENSION
     Dosage: 50MG/DAY
     Route: 048

REACTIONS (1)
  - PETIT MAL EPILEPSY [None]
